FAERS Safety Report 14695434 (Version 6)
Quarter: 2018Q2

REPORT INFORMATION
  Report Type: Spontaneous
  Country: NL (occurrence: NL)
  Receive Date: 20180329
  Receipt Date: 20180619
  Transmission Date: 20180711
  Serious: Yes (Death, Hospitalization, Other)
  Sender: FDA-Public Use
  Company Number: NL-PFIZER INC-2018129257

PATIENT
  Age: 50 Year

DRUGS (11)
  1. DIAZEPAM. [Concomitant]
     Active Substance: DIAZEPAM
     Dosage: 10 MG, AS NEEDED
  2. VALPROIC ACID. [Interacting]
     Active Substance: VALPROIC ACID
     Indication: EPILEPSY
     Dosage: 800 MG, 2X/DAY
     Route: 042
  3. MEROPENEM. [Suspect]
     Active Substance: MEROPENEM
     Indication: PNEUMONIA
     Dosage: 1000 MG, 3X/DAY
     Route: 042
  4. CARBASALAATCALCIUM [Concomitant]
     Active Substance: CARBASPIRIN
     Dosage: 100 MG, 1X/DAY
  5. LOPERAMIDE [Concomitant]
     Active Substance: LOPERAMIDE
     Dosage: 1 MG, 3X/DAY
  6. ESOMEPRAZOL [Concomitant]
     Active Substance: ESOMEPRAZOLE
     Dosage: 10 MG, 1X/DAY
  7. ATORVASTATINE [Concomitant]
     Active Substance: ATORVASTATIN
     Dosage: 40 MG, 1X/DAY
  8. PHENYTOIN. [Concomitant]
     Active Substance: PHENYTOIN
     Dosage: 75 MG, 3X/DAY
     Route: 042
  9. VALPROIC ACID. [Interacting]
     Active Substance: VALPROIC ACID
     Dosage: 800 MG, 2X/DAY
     Route: 048
  10. VALPROIC ACID. [Interacting]
     Active Substance: VALPROIC ACID
     Dosage: 800 MG, 3X/DAY
  11. PHENYTOIN. [Concomitant]
     Active Substance: PHENYTOIN
     Dosage: 75 MG, 2X/DAY
     Route: 042

REACTIONS (6)
  - Pneumonia [Fatal]
  - Infection [Unknown]
  - Atelectasis [Unknown]
  - Drug interaction [Unknown]
  - Pleural effusion [Unknown]
  - Hypoalbuminaemia [Unknown]
